FAERS Safety Report 8245027-7 (Version None)
Quarter: 2012Q1

REPORT INFORMATION
  Report Type: 
  Country: None (occurrence: None)
  Receive Date: 20120329
  Receipt Date: 20120327
  Transmission Date: 20120608
  Serious: Yes (Other)
  Sender: FDA-Public Use
  Company Number: US-PFIZER INC-2012022303

PATIENT
  Sex: Female
  Weight: 63 kg

DRUGS (8)
  1. SERTRALINE HYDROCHLORIDE [Suspect]
     Dosage: 100 MG, 1X/DAY
     Route: 048
  2. SERTRALINE HYDROCHLORIDE [Suspect]
     Indication: DEPRESSION
     Dosage: 150 MG, 1X/DAY
     Route: 048
     Dates: start: 20120124, end: 20120124
  3. SERTRALINE HYDROCHLORIDE [Suspect]
     Dosage: 50 MG, 1X/DAY
     Route: 048
     Dates: end: 20120201
  4. SERTRALINE HYDROCHLORIDE [Suspect]
     Indication: BIPOLAR I DISORDER
     Dosage: 50 MG, 1X/DAY
     Route: 048
     Dates: start: 20120125
  5. SERTRALINE HYDROCHLORIDE [Suspect]
     Indication: BIPOLAR DISORDER
     Dosage: 100 MG, 1X/DAY
     Route: 048
     Dates: start: 20111001, end: 20120123
  6. GEMFIBROZIL [Concomitant]
     Indication: BLOOD CHOLESTEROL INCREASED
     Dosage: UNK
  7. ALLOPURINOL [Concomitant]
     Indication: GOUT
     Dosage: UNK
  8. ZYPREXA [Concomitant]
     Dosage: UNK

REACTIONS (3)
  - BLOOD GLUCOSE INCREASED [None]
  - DEPRESSION [None]
  - HYPERHIDROSIS [None]
